FAERS Safety Report 12429511 (Version 1)
Quarter: 2016Q2

REPORT INFORMATION
  Report Type: Spontaneous
  Country: US (occurrence: US)
  Receive Date: 20160602
  Receipt Date: 20160602
  Transmission Date: 20160815
  Serious: No
  Sender: FDA-Public Use
  Company Number: US-BAYER-2016-099240

PATIENT
  Sex: Male
  Weight: 73.46 kg

DRUGS (1)
  1. CLARITIN [Suspect]
     Active Substance: LORATADINE
     Indication: SEASONAL ALLERGY
     Dosage: 1 DF, QD
     Route: 048
     Dates: start: 2015, end: 20160520

REACTIONS (2)
  - Fatigue [Not Recovered/Not Resolved]
  - Increased upper airway secretion [Not Recovered/Not Resolved]
